FAERS Safety Report 9771111 (Version 2)
Quarter: 2013Q4

REPORT INFORMATION
  Report Type: Spontaneous
  Country: IT (occurrence: IT)
  Receive Date: 20131218
  Receipt Date: 20131227
  Transmission Date: 20140711
  Serious: Yes (Other)
  Sender: FDA-Public Use
  Company Number: IT-TEVA-450610ISR

PATIENT
  Age: 25 Year
  Sex: Male

DRUGS (3)
  1. CARBAMAZEPINE [Suspect]
     Indication: EPILEPSY
     Route: 065
  2. DEXAMETHASONE [Interacting]
     Indication: ADRENOGENITAL SYNDROME
     Dosage: 0.50 MG/DAY
     Route: 065
  3. FLUDROCORTISONE [Interacting]
     Indication: ADRENOGENITAL SYNDROME
     Dosage: UP TO 0.1 MG/DAY
     Route: 065

REACTIONS (2)
  - Adrenal insufficiency [Recovered/Resolved]
  - Drug interaction [Recovered/Resolved]
